FAERS Safety Report 22655543 (Version 1)
Quarter: 2023Q2

REPORT INFORMATION
  Report Type: Spontaneous
  Country: US (occurrence: US)
  Receive Date: 20230629
  Receipt Date: 20230629
  Transmission Date: 20230722
  Serious: No
  Sender: FDA-Public Use
  Company Number: US-GSKCCFUS-Case-01731645_AE-97554

PATIENT
  Age: 81 Year
  Sex: Female

DRUGS (1)
  1. SEREVENT DISKUS [Suspect]
     Active Substance: SALMETEROL XINAFOATE
     Indication: Asthma
     Dosage: UNK UNK, BID
     Dates: start: 20230611, end: 20230619

REACTIONS (4)
  - Anosmia [Recovered/Resolved]
  - Ageusia [Recovered/Resolved]
  - Paraesthesia oral [Recovered/Resolved]
  - Device issue [Recovered/Resolved]

NARRATIVE: CASE EVENT DATE: 20230611
